FAERS Safety Report 8900950 (Version 2)
Quarter: 2012Q4

REPORT INFORMATION
  Report Type: 
  Country: JP (occurrence: JP)
  Receive Date: 20121109
  Receipt Date: 20121109
  Transmission Date: 20130627
  Serious: Yes (Other)
  Sender: FDA-Public Use
  Company Number: PHHY2012JP081914

PATIENT
  Sex: Female

DRUGS (3)
  1. DIOVAN [Suspect]
     Indication: HYPERTENSION
     Dosage: 80 mg, daily
     Route: 048
     Dates: start: 201104
  2. BAYASPIRIN [Suspect]
     Dosage: 100 mg daily
     Route: 048
     Dates: start: 201104
  3. LIPITOR [Suspect]
     Dosage: 10 mg, UNK
     Route: 048
     Dates: start: 201202

REACTIONS (1)
  - Amylase increased [Unknown]
